FAERS Safety Report 6173699-X (Version None)
Quarter: 2009Q2

REPORT INFORMATION
  Report Type: 
  Country: None (occurrence: None)
  Receive Date: 20090430
  Receipt Date: 20090420
  Transmission Date: 20091009
  Serious: Yes (Hospitalization)
  Sender: FDA-Public Use
  Company Number: PHHY2009FR15460

PATIENT
  Age: 46 Year
  Sex: Female

DRUGS (3)
  1. TEGRETOL-XR [Suspect]
     Indication: TRIGEMINAL NEURALGIA
     Dosage: 200 MG, BID
     Route: 048
     Dates: start: 20081210, end: 20090108
  2. VOLTAREN [Suspect]
     Indication: BACK PAIN
     Dosage: 1 DF, BID
     Route: 048
     Dates: start: 20081230, end: 20090107
  3. LANZOR [Suspect]
     Indication: BACK PAIN
     Dosage: 1 DF, QD
     Route: 048
     Dates: start: 20081230, end: 20090107

REACTIONS (10)
  - CYTOLYTIC HEPATITIS [None]
  - DRUG RASH WITH EOSINOPHILIA AND SYSTEMIC SYMPTOMS [None]
  - HEPATITIS CHOLESTATIC [None]
  - HYPERTHERMIA [None]
  - LYMPHADENECTOMY [None]
  - LYMPHADENOPATHY [None]
  - NASOPHARYNGITIS [None]
  - PARAKERATOSIS [None]
  - PERIVASCULAR DERMATITIS [None]
  - RASH MACULO-PAPULAR [None]
